FAERS Safety Report 9575402 (Version 1)
Quarter: 2013Q4

REPORT INFORMATION
  Report Type: Spontaneous
  Country: US (occurrence: US)
  Receive Date: 20131001
  Receipt Date: 20131001
  Transmission Date: 20140711
  Serious: No
  Sender: FDA-Public Use
  Company Number: US-AMGEN-USASP2013001914

PATIENT
  Sex: Male
  Weight: 83.9 kg

DRUGS (3)
  1. ENBREL [Suspect]
     Indication: PSORIASIS
     Dosage: 50 MG, 2 TIMES/WK
     Route: 058
  2. METHOTREXATE [Concomitant]
     Dosage: 2.5 MG, UNK
  3. CELEXA                             /00582602/ [Concomitant]
     Dosage: 10 MG, UNK

REACTIONS (2)
  - Acne [Unknown]
  - Injection site erythema [Recovered/Resolved]
